FAERS Safety Report 7094857-6 (Version None)
Quarter: 2010Q4

REPORT INFORMATION
  Report Type: 
  Country: None (occurrence: None)
  Receive Date: 20101111
  Receipt Date: 20101101
  Transmission Date: 20110411
  Serious: Yes (Hospitalization)
  Sender: FDA-Public Use
  Company Number: US-BIOGENIDEC-2010BI037857

PATIENT
  Age: 49 Year
  Sex: Female
  Weight: 68 kg

DRUGS (1)
  1. AVONEX [Suspect]
     Indication: MULTIPLE SCLEROSIS
     Route: 030
     Dates: start: 20030501, end: 20100301

REACTIONS (11)
  - BALANCE DISORDER [None]
  - BLOOD PRESSURE INCREASED [None]
  - CONVULSION [None]
  - FALL [None]
  - GENERAL SYMPTOM [None]
  - HEARING IMPAIRED [None]
  - MEMORY IMPAIRMENT [None]
  - MULTIPLE SCLEROSIS [None]
  - MUSCLE SPASMS [None]
  - RASH [None]
  - THYROID DISORDER [None]
